FAERS Safety Report 24047422 (Version 2)
Quarter: 2024Q4

REPORT INFORMATION
  Report Type: Spontaneous
  Country: US (occurrence: US)
  Receive Date: 20240703
  Receipt Date: 20241118
  Transmission Date: 20250114
  Serious: No
  Sender: LUNDBECK
  Company Number: US-LUNDBECK-DKLU3078112

PATIENT

DRUGS (1)
  1. VYEPTI [Suspect]
     Active Substance: EPTINEZUMAB-JJMR
     Indication: Migraine with aura
     Dosage: 300 MILLIGRAM
     Route: 041

REACTIONS (2)
  - Illness [Unknown]
  - Product dose omission issue [Unknown]
